FAERS Safety Report 10085911 (Version 1)
Quarter: 2014Q2

REPORT INFORMATION
  Report Type: Spontaneous
  Country: US (occurrence: US)
  Receive Date: 20140418
  Receipt Date: 20140418
  Transmission Date: 20141212
  Serious: Yes (Hospitalization)
  Sender: FDA-Public Use
  Company Number: US-SUN PHARMACEUTICAL INDUSTRIES LTD-2014SUN00785

PATIENT
  Age: 68 Year
  Sex: Male

DRUGS (9)
  1. SULFAMETHOXAZOLE AND TRIMETHOPRIM TABLETS, USP 800 MG/ 160 MG [Suspect]
     Indication: PROPHYLAXIS
     Dosage: UNK
     Route: 065
  2. SULFAMETHOXAZOLE AND TRIMETHOPRIM TABLETS, USP 800 MG/ 160 MG [Suspect]
     Indication: PNEUMOCYSTIS JIROVECII PNEUMONIA
  3. RITUXIMAB [Suspect]
     Indication: DIFFUSE LARGE B-CELL LYMPHOMA STAGE IV
     Route: 065
  4. CYCLOPHOSPHAMIDE [Suspect]
     Indication: DIFFUSE LARGE B-CELL LYMPHOMA STAGE IV
     Route: 065
  5. VINCRISTINE [Suspect]
     Indication: DIFFUSE LARGE B-CELL LYMPHOMA STAGE IV
     Route: 065
  6. PREDNISONE [Suspect]
     Indication: DIFFUSE LARGE B-CELL LYMPHOMA STAGE IV
     Route: 065
  7. DOXORUBICIN [Suspect]
     Indication: DIFFUSE LARGE B-CELL LYMPHOMA STAGE IV
     Route: 065
  8. OMEPRAZOLE [Concomitant]
  9. PROCHLORPERAZINE [Concomitant]
     Indication: NAUSEA
     Dosage: UNK, PRN

REACTIONS (1)
  - Hepatosplenic candidiasis [Unknown]
